FAERS Safety Report 5943432-2 (Version None)
Quarter: 2008Q4

REPORT INFORMATION
  Report Type: 
  Country: None (occurrence: None)
  Receive Date: 20081106
  Receipt Date: 20081023
  Transmission Date: 20090506
  Serious: Yes (Other)
  Sender: FDA-Public Use
  Company Number: US-ELI_LILLY_AND_COMPANY-US200810005667

PATIENT
  Sex: Female

DRUGS (2)
  1. FORTEO [Suspect]
     Indication: OSTEOPOROSIS
     Dosage: 20 UG, EACH MORNING
     Dates: start: 20081010, end: 20081025
  2. IBUPROFEN TABLETS [Concomitant]
     Indication: PAIN
     Dosage: 600 MG, AS NEEDED

REACTIONS (6)
  - CEREBROVASCULAR ACCIDENT [None]
  - DECREASED APPETITE [None]
  - DIZZINESS [None]
  - MALAISE [None]
  - NAUSEA [None]
  - WEIGHT DECREASED [None]
